FAERS Safety Report 9324014 (Version 3)
Quarter: 2013Q2

REPORT INFORMATION
  Report Type: Spontaneous
  Country: DE (occurrence: DE)
  Receive Date: 20130603
  Receipt Date: 20130620
  Transmission Date: 20140414
  Serious: Yes (Hospitalization, Disabling, Other)
  Sender: FDA-Public Use
  Company Number: DE-BRISTOL-MYERS SQUIBB COMPANY-18940122

PATIENT
  Age: 60 Year
  Sex: Female

DRUGS (11)
  1. ORENCIA [Suspect]
     Indication: RHEUMATOID ARTHRITIS
     Route: 042
     Dates: start: 20121001, end: 20130219
  2. ORENCIA [Suspect]
     Indication: RHEUMATOID ARTHRITIS
     Dosage: S.C., 125 MG/WEEKLY APRIL 2013?I.V., 750 MG/EVERY FOUR WEEKS SEP 2012
     Route: 042
     Dates: start: 201209
  3. ABATACEPT SUBQ INJECTION 125MG/ML [Suspect]
     Dosage: ONG
     Route: 058
     Dates: start: 20130402
  4. VOLTAREN RESINAT [Concomitant]
  5. METHYLPREDNISOLONE [Concomitant]
  6. ATENOLOL [Concomitant]
  7. PANTOPRAZOLE [Concomitant]
     Dosage: 20
  8. ASS 100 [Concomitant]
  9. ACLASTA [Concomitant]
  10. DUOPLAVIN [Concomitant]
  11. METHOTREXATE [Concomitant]
     Route: 058

REACTIONS (2)
  - Rotator cuff syndrome [Not Recovered/Not Resolved]
  - Peripheral arterial occlusive disease [Recovering/Resolving]
